FAERS Safety Report 4991882-3 (Version None)
Quarter: 2006Q2

REPORT INFORMATION
  Report Type: 
  Country: None (occurrence: None)
  Receive Date: 20060504
  Receipt Date: 20051110
  Transmission Date: 20061013
  Serious: Yes (Hospitalization)
  Sender: FDA-Public Use
  Company Number: US-MERCK-0511USA01894

PATIENT
  Age: 56 Year
  Sex: Male
  Weight: 95 kg

DRUGS (16)
  1. VIOXX [Suspect]
     Indication: ARTHRITIS
     Route: 048
     Dates: start: 20000229, end: 20020709
  2. VIOXX [Suspect]
     Route: 048
     Dates: start: 20000229, end: 20020709
  3. PROZAC [Concomitant]
     Indication: DEPRESSION
     Route: 048
  4. ZYRTEC [Concomitant]
     Indication: HYPERSENSITIVITY
     Route: 048
  5. INSULIN, BIPHASIC ISOPHANE [INJECTION] [Concomitant]
     Indication: DIABETES MELLITUS
     Route: 030
  6. NEURONTIN [Concomitant]
     Indication: ARTHRITIS
     Route: 048
  7. ALBUTEROL SULFATE [Concomitant]
     Indication: ASTHMA
     Route: 065
  8. ALBUTEROL [Concomitant]
     Indication: ASTHMA
     Route: 055
  9. PREVACID [Concomitant]
     Indication: GASTROOESOPHAGEAL REFLUX DISEASE
     Route: 065
  10. GUAIFENESIN [Concomitant]
     Indication: COUGH
     Route: 048
  11. AVANDIA [Concomitant]
     Indication: DIABETES MELLITUS
     Route: 048
  12. LASIX [Concomitant]
     Indication: FLUID RETENTION
     Route: 065
  13. ZOCOR [Concomitant]
     Indication: BLOOD CHOLESTEROL INCREASED
     Route: 048
  14. NASONEX [Concomitant]
     Indication: HYPERSENSITIVITY
     Route: 055
  15. WELCHOL [Concomitant]
     Route: 048
  16. SINGULAIR [Concomitant]
     Route: 048

REACTIONS (21)
  - BACK PAIN [None]
  - CAROTID ARTERY DISEASE [None]
  - CAROTID ARTERY STENOSIS [None]
  - CEREBROVASCULAR ACCIDENT [None]
  - CHEST PAIN [None]
  - CONFUSIONAL STATE [None]
  - DEPRESSION [None]
  - DIZZINESS [None]
  - DYSPHAGIA [None]
  - DYSPNOEA [None]
  - HEADACHE [None]
  - HEMIPARESIS [None]
  - HYPERLIPIDAEMIA [None]
  - HYPERTENSION [None]
  - LEUKOPENIA [None]
  - LOSS OF LIBIDO [None]
  - NECK PAIN [None]
  - PANIC ATTACK [None]
  - RHINITIS ALLERGIC [None]
  - SHOULDER PAIN [None]
  - THYROID NEOPLASM [None]
